FAERS Safety Report 12596732 (Version 1)
Quarter: 2016Q3

REPORT INFORMATION
  Report Type: Spontaneous
  Country: US (occurrence: US)
  Receive Date: 20160726
  Receipt Date: 20160726
  Transmission Date: 20161109
  Serious: No
  Sender: FDA-Public Use
  Company Number: US-ASTRAZENECA-2016SE79165

PATIENT
  Sex: Female

DRUGS (2)
  1. OPIOID MEDICATION [Concomitant]
  2. MOVANTIK [Suspect]
     Active Substance: NALOXEGOL OXALATE
     Indication: CONSTIPATION
     Route: 048

REACTIONS (3)
  - Chills [Unknown]
  - Vomiting [Unknown]
  - Malaise [Unknown]
